FAERS Safety Report 18953103 (Version 3)
Quarter: 2021Q1

REPORT INFORMATION
  Report Type: Spontaneous
  Country: US (occurrence: US)
  Receive Date: 20210301
  Receipt Date: 20210330
  Transmission Date: 20210420
  Serious: No
  Sender: FDA-Public Use
  Company Number: US-SA-2021SA063089

PATIENT
  Sex: Male

DRUGS (2)
  1. ADMELOG [Suspect]
     Active Substance: INSULIN LISPRO
     Indication: DIABETES MELLITUS
     Dosage: 10 IU, AFTER EATING
     Route: 065
     Dates: start: 20210219
  2. ADMELOG [Suspect]
     Active Substance: INSULIN LISPRO
     Dosage: 90 IU
     Dates: start: 20210222

REACTIONS (4)
  - Confusional state [Unknown]
  - Nervousness [Unknown]
  - Wrong product administered [Unknown]
  - Accidental overdose [Unknown]

NARRATIVE: CASE EVENT DATE: 20210222
